FAERS Safety Report 7933296-X (Version None)
Quarter: 2011Q4

REPORT INFORMATION
  Report Type: 
  Country: None (occurrence: None)
  Receive Date: 20111122
  Receipt Date: 20111117
  Transmission Date: 20120403
  Serious: Yes (Death, Life-Threatening, Hospitalization, Other)
  Sender: FDA-Public Use
  Company Number: PHHY2011GB100957

PATIENT
  Age: 64 Year
  Sex: Male
  Weight: 95 kg

DRUGS (7)
  1. CLARITHROMYCIN [Suspect]
     Indication: LOWER RESPIRATORY TRACT INFECTION
     Dosage: UNK
     Dates: start: 20110218
  2. BENDROFLUMETHIAZIDE [Concomitant]
  3. AMITRIPTYLINE HCL [Concomitant]
  4. LEVOTHYROXINE SODIUM [Concomitant]
  5. LISINOPRIL [Concomitant]
  6. BETNOVATE [Concomitant]
  7. DOXAZOSIN MESYLATE [Concomitant]

REACTIONS (18)
  - UPPER AIRWAY OBSTRUCTION [None]
  - ACUTE RESPIRATORY FAILURE [None]
  - LARYNGEAL OEDEMA [None]
  - PULMONARY OEDEMA [None]
  - CARDIOMEGALY [None]
  - KIDNEY FIBROSIS [None]
  - ACUTE RESPIRATORY DISTRESS SYNDROME [None]
  - HEPATIC CONGESTION [None]
  - RENAL FAILURE [None]
  - VENOUS INSUFFICIENCY [None]
  - GASTRITIS HAEMORRHAGIC [None]
  - ARTERIOSCLEROSIS CORONARY ARTERY [None]
  - HYPERTROPHY [None]
  - ANAPHYLACTIC REACTION [None]
  - SWOLLEN TONGUE [None]
  - ACUTE LUNG INJURY [None]
  - DIFFUSE ALVEOLAR DAMAGE [None]
  - BRONCHOPNEUMONIA [None]
